FAERS Safety Report 9477341 (Version 1)
Quarter: 2013Q3

REPORT INFORMATION
  Report Type: Spontaneous
  Country: SE (occurrence: SE)
  Receive Date: 20130826
  Receipt Date: 20130826
  Transmission Date: 20140515
  Serious: Yes (Hospitalization)
  Sender: FDA-Public Use
  Company Number: SE-WATSON-2013-15397

PATIENT
  Age: 26 Year
  Sex: Male

DRUGS (2)
  1. ENALAPRIL (UNKNOWN) [Suspect]
     Indication: HYPERTENSION
     Dosage: 5 MG, DAILY
     Route: 065
  2. IBUPROFEN (UNKNOWN) [Suspect]
     Indication: PRODUCT USED FOR UNKNOWN INDICATION
     Dosage: 800 MG, DAILY
     Route: 065
     Dates: start: 20130506, end: 20130508

REACTIONS (2)
  - Renal failure acute [Not Recovered/Not Resolved]
  - Drug interaction [Not Recovered/Not Resolved]
